FAERS Safety Report 4850850-2 (Version None)
Quarter: 2005Q4

REPORT INFORMATION
  Report Type: 
  Country: None (occurrence: None)
  Receive Date: 20051208
  Receipt Date: 20051128
  Transmission Date: 20060501
  Serious: Yes (Disabling)
  Sender: FDA-Public Use
  Company Number: 2005155872

PATIENT
  Sex: Female

DRUGS (5)
  1. EPIRUBICIN HCL [Suspect]
     Indication: BREAST CANCER
     Dosage: 1150 MG (1150 MG,ONCE)
     Dates: start: 20030516, end: 20030901
  2. FLURABLASTIN (FLUOROURACIL SODIUM) [Concomitant]
     Indication: BREAST CANCER
     Dosage: 1150 MG, (1150 MG, ONCE)
     Dates: start: 20030516, end: 20030901
  3. CYCLOPHOSPHAMIDE [Suspect]
     Indication: BREAST CANCER
     Dosage: 1150 MG (1150 MG, ONCE)
     Dates: start: 20030516, end: 20030901
  4. ZOFRAN [Concomitant]
  5. DEXAMETHASONE [Concomitant]

REACTIONS (4)
  - DYSGEUSIA [None]
  - HYPOGEUSIA [None]
  - HYPOSMIA [None]
  - PAROSMIA [None]
